FAERS Safety Report 8564932-5 (Version None)
Quarter: 2012Q3

REPORT INFORMATION
  Report Type: 
  Country: None (occurrence: None)
  Receive Date: 20120803
  Receipt Date: 20120727
  Transmission Date: 20120928
  Serious: Yes (Other)
  Sender: FDA-Public Use
  Company Number: US-PFIZER INC-2012182889

PATIENT
  Age: 89 Year
  Sex: Female

DRUGS (1)
  1. ROBITUSSIN COUGH AND CHEST CONGESTION DM MAX [Suspect]
     Dosage: UNK

REACTIONS (6)
  - COUGH [None]
  - DRUG INEFFECTIVE [None]
  - RHINORRHOEA [None]
  - HYPOACUSIS [None]
  - NASAL CONGESTION [None]
  - PAIN [None]
